FAERS Safety Report 7969287-2 (Version None)
Quarter: 2011Q4

REPORT INFORMATION
  Report Type: 
  Country: None (occurrence: None)
  Receive Date: 20111209
  Receipt Date: 20111205
  Transmission Date: 20120403
  Serious: Yes (Hospitalization, Other)
  Sender: FDA-Public Use
  Company Number: CA-ROCHE-764364

PATIENT
  Sex: Female

DRUGS (10)
  1. DIPHENHYDRAMINE HCL [Concomitant]
     Indication: PREMEDICATION
     Route: 048
     Dates: start: 20110218, end: 20110218
  2. MABTHERA [Suspect]
     Indication: RHEUMATOID ARTHRITIS
     Dosage: FREQ: DAY 1 AND 15. FORM: INFUSION.
     Route: 042
     Dates: start: 20110204, end: 20110218
  3. PREDNISONE [Concomitant]
  4. METHYLPREDNISOLONE [Concomitant]
     Indication: PREMEDICATION
     Route: 042
     Dates: start: 20110218, end: 20110218
  5. ACETAMINOPHEN [Concomitant]
     Indication: PREMEDICATION
     Route: 048
     Dates: start: 20110218, end: 20110218
  6. DIDROCAL [Concomitant]
  7. DIDROCAL [Concomitant]
     Dosage: DRUG DIDROCAL PACK
  8. OMEGA-3 TRIGLYCERIDES [Concomitant]
  9. ACETAMINOPHEN [Concomitant]
     Dosage: DRUG: TYLENOL 3; FREQUENCY: PRN
  10. OMEPRAZOLE [Concomitant]

REACTIONS (4)
  - HEADACHE [None]
  - PHLEBITIS [None]
  - PULMONARY EMBOLISM [None]
  - NASOPHARYNGITIS [None]
